FAERS Safety Report 9442537 (Version 1)
Quarter: 2013Q3

REPORT INFORMATION
  Report Type: Spontaneous
  Country: US (occurrence: US)
  Receive Date: 20130806
  Receipt Date: 20130806
  Transmission Date: 20140515
  Serious: Yes (Other)
  Sender: FDA-Public Use
  Company Number: US-PFIZER INC-2013225426

PATIENT
  Age: 49 Year
  Sex: Female
  Weight: 58.96 kg

DRUGS (7)
  1. LYRICA [Suspect]
     Indication: BACK PAIN
     Dosage: 75 MG, 2X/DAY
  2. LYRICA [Suspect]
     Indication: JOINT SWELLING
     Dosage: 75 MG, 4X/DAY
  3. FENTANYL [Suspect]
     Indication: PAIN
     Dosage: UNK
     Route: 062
  4. ATENOLOL [Suspect]
     Indication: PAIN
     Dosage: UNK
     Route: 062
  5. HYDROCODONE W/ACETAMINOPHEN [Suspect]
     Indication: PAIN
     Dosage: 5/500 MG OR 5/325 MG AS NEEDED
  6. ENBREL [Concomitant]
     Indication: RHEUMATOID ARTHRITIS
     Dosage: UNK
  7. PROZAC [Concomitant]
     Indication: DEPRESSION
     Dosage: 20 MG/DAY

REACTIONS (11)
  - Suicide attempt [Recovered/Resolved]
  - Muscle rupture [Unknown]
  - Feeling abnormal [Recovered/Resolved]
  - Pain [Recovered/Resolved]
  - Agitation [Recovered/Resolved]
  - Anger [Recovered/Resolved]
  - Anxiety [Recovered/Resolved]
  - Back pain [Unknown]
  - Hypersensitivity [Unknown]
  - Butterfly rash [Unknown]
  - Drug ineffective [Unknown]
